FAERS Safety Report 8443915-X (Version None)
Quarter: 2012Q2

REPORT INFORMATION
  Report Type: 
  Country: None (occurrence: None)
  Receive Date: 20120618
  Receipt Date: 20120608
  Transmission Date: 20120825
  Serious: Yes (Hospitalization)
  Sender: FDA-Public Use
  Company Number: US-BAYER-2011-100150

PATIENT
  Age: 19 Year
  Sex: Female
  Weight: 56.689 kg

DRUGS (4)
  1. HYDROCODONE BITARTRATE [Concomitant]
  2. YAZ [Suspect]
     Indication: CONTRACEPTION
     Dosage: UNK
     Dates: start: 20080201, end: 20100101
  3. RANITIDINE [Concomitant]
  4. PHENERGAN [Concomitant]

REACTIONS (4)
  - CHOLECYSTITIS [None]
  - BILIARY DYSKINESIA [None]
  - CHOLELITHIASIS [None]
  - INJURY [None]
